FAERS Safety Report 9335693 (Version 2)
Quarter: 2013Q4

REPORT INFORMATION
  Report Type: Spontaneous
  Country: US (occurrence: US)
  Receive Date: 20130605
  Receipt Date: 20131120
  Transmission Date: 20140711
  Serious: Yes (Hospitalization)
  Sender: FDA-Public Use
  Company Number: US-B.I. PHARMACEUTICALS,INC./RIDGEFIELD-2013-BI-15600BP

PATIENT
  Age: 75 Year
  Sex: Female
  Weight: 65.77 kg

DRUGS (18)
  1. PRADAXA [Suspect]
     Indication: ANTICOAGULANT THERAPY
     Dosage: 300 MG
     Dates: start: 20110922, end: 20120706
  2. GLIPIZIDE [Concomitant]
     Dosage: 2.5 MG
  3. SIMVASTATIN [Concomitant]
     Dosage: 5 MG
  4. TAMOXIFEN [Concomitant]
     Dosage: 20 MG
  5. VITAMIN B [Concomitant]
  6. FLEXERIL [Concomitant]
     Dosage: 10 MG
  7. SPIRIVA [Concomitant]
     Dosage: 18 MCG
  8. FLONASE [Concomitant]
  9. ALLOPURINOL [Concomitant]
     Dosage: 300 MG
  10. TRAMADOL [Concomitant]
  11. MUCINEX [Concomitant]
  12. KLOR-CON [Concomitant]
     Dosage: 20 MEQ
  13. DILTIAZEM [Concomitant]
     Dosage: 300 MG
  14. DIGOXIN [Concomitant]
     Dosage: 125 MCG
  15. REQUIP [Concomitant]
  16. TYLENOL [Concomitant]
     Dosage: 650 MG
  17. MULTIVITAMIN [Concomitant]
  18. CALCIUM WITH VITAMIN D [Concomitant]

REACTIONS (3)
  - Pericardial effusion [Unknown]
  - Anaemia [Unknown]
  - Renal failure acute [Recovered/Resolved]
